FAERS Safety Report 8475235-1 (Version None)
Quarter: 2012Q2

REPORT INFORMATION
  Report Type: 
  Country: None (occurrence: None)
  Receive Date: 20120628
  Receipt Date: 20120620
  Transmission Date: 20120825
  Serious: Yes (Other)
  Sender: FDA-Public Use
  Company Number: US-BAYER-2012-061695

PATIENT

DRUGS (1)
  1. MIRENA [Suspect]
     Indication: CONTRACEPTION
     Dosage: 20 MCG/24HR, CONT
     Route: 015
     Dates: start: 20111101

REACTIONS (5)
  - COAGULOPATHY [None]
  - BLOOD IRON DECREASED [None]
  - CONTUSION [None]
  - AMENORRHOEA [None]
  - BLINDNESS TRANSIENT [None]
